FAERS Safety Report 21270389 (Version 2)
Quarter: 2022Q3

REPORT INFORMATION
  Report Type: Spontaneous
  Country: US (occurrence: US)
  Receive Date: 20220830
  Receipt Date: 20220907
  Transmission Date: 20221027
  Serious: No
  Sender: FDA-Public Use
  Company Number: US-PFIZER INC-202201099430

PATIENT
  Age: 51 Year
  Sex: Female

DRUGS (5)
  1. PAXLOVID [Suspect]
     Active Substance: NIRMATRELVIR\RITONAVIR
     Indication: COVID-19 treatment
     Dosage: UNK
     Dates: start: 20220817, end: 20220822
  2. ACETAMINOPHEN [Concomitant]
     Active Substance: ACETAMINOPHEN
     Dosage: UNK
  3. CYMBALTA [Concomitant]
     Active Substance: DULOXETINE HYDROCHLORIDE
     Dosage: 60 MG, DAILY
     Route: 048
  4. LYRICA [Concomitant]
     Active Substance: PREGABALIN
     Dosage: 225 MG, DAILY, (75 MG AM, 150 MG PM)
  5. TYLENOL [Concomitant]
     Active Substance: ACETAMINOPHEN
     Dosage: 1300 MG, DAILY
     Route: 048

REACTIONS (2)
  - COVID-19 [Not Recovered/Not Resolved]
  - Disease recurrence [Not Recovered/Not Resolved]

NARRATIVE: CASE EVENT DATE: 20220826
